FAERS Safety Report 21408294 (Version 1)
Quarter: 2022Q4

REPORT INFORMATION
  Report Type: Spontaneous
  Country: DE (occurrence: DE)
  Receive Date: 20221004
  Receipt Date: 20221004
  Transmission Date: 20230113
  Serious: Yes (Hospitalization)
  Sender: FDA-Public Use
  Company Number: DE-ADRED-08336-03

PATIENT
  Age: 81 Year
  Sex: Male
  Weight: 60 kg

DRUGS (13)
  1. RISPERIDONE [Suspect]
     Active Substance: RISPERIDONE
     Indication: Product used for unknown indication
     Dosage: 0.5 MG, 0-0-0.5-0
     Route: 065
  2. APIXABAN [Suspect]
     Active Substance: APIXABAN
     Indication: Product used for unknown indication
     Dosage: 2.5 MG, 1-0-1-0
     Route: 065
  3. ASPIRIN [Suspect]
     Active Substance: ASPIRIN
     Indication: Product used for unknown indication
     Route: 065
  4. INSULIN GLARGINE [Concomitant]
     Active Substance: INSULIN GLARGINE
     Dosage: 1 IE, 30-0-0-0
  5. PANCREAS POWDER FROM PORCINE [Concomitant]
     Dosage: 25000 IE, 1-0-1-0
  6. ATORVASTATIN [Concomitant]
     Active Substance: ATORVASTATIN
     Dosage: 20 MG, 0-0-1-0
  7. INSULIN HUMAN [Concomitant]
     Active Substance: INSULIN HUMAN
     Dosage: 1 IE, SCHEMA
  8. LACTULOSE [Concomitant]
     Active Substance: LACTULOSE
     Dosage: 10 ML, 1-0-0-0
  9. CHOLECALCIFEROL [Concomitant]
     Active Substance: CHOLECALCIFEROL
     Dosage: 1000 IE / TAG, 1-0-0-0
  10. TAMSULOSIN [Concomitant]
     Active Substance: TAMSULOSIN
     Dosage: 0.4 MG, 1-0-0-0
  11. PANTOPRAZOLE [Concomitant]
     Active Substance: PANTOPRAZOLE
  12. INSULIN HUMAN [Concomitant]
     Active Substance: INSULIN HUMAN
  13. TORSEMIDE [Concomitant]
     Active Substance: TORSEMIDE

REACTIONS (19)
  - Cachexia [Unknown]
  - Tachypnoea [Unknown]
  - Urosepsis [Unknown]
  - Renal impairment [Unknown]
  - Hydronephrosis [Unknown]
  - Hypotension [Unknown]
  - Anaemia [Unknown]
  - Tachycardia [Unknown]
  - Systemic infection [Unknown]
  - Acute respiratory failure [Unknown]
  - General physical health deterioration [Unknown]
  - Depressed level of consciousness [Unknown]
  - Condition aggravated [Unknown]
  - Dizziness [Unknown]
  - Urinary incontinence [Unknown]
  - Haematuria [Recovering/Resolving]
  - Dementia [Unknown]
  - Dehydration [Unknown]
  - Memory impairment [Unknown]
